FAERS Safety Report 5356537-4 (Version None)
Quarter: 2007Q2

REPORT INFORMATION
  Report Type: 
  Country: None (occurrence: None)
  Receive Date: 20070530
  Receipt Date: 20061214
  Transmission Date: 20071010
  Serious: Yes (Hospitalization)
  Sender: FDA-Public Use
  Company Number: US200608006824

PATIENT
  Age: 13 Year
  Sex: Male
  Weight: 72.6 kg

DRUGS (1)
  1. ZYPREXA [Suspect]
     Dates: start: 19970101, end: 20040101

REACTIONS (4)
  - DIABETES MELLITUS [None]
  - INTESTINAL FUNCTIONAL DISORDER [None]
  - PAIN [None]
  - STOMACH DISCOMFORT [None]
